FAERS Safety Report 20909129 (Version 1)
Quarter: 2022Q2

REPORT INFORMATION
  Report Type: Spontaneous
  Country: US (occurrence: US)
  Receive Date: 20220603
  Receipt Date: 20220603
  Transmission Date: 20220721
  Serious: No
  Sender: FDA-Public Use
  Company Number: US-009507513-1012USA02203

PATIENT
  Sex: Female
  Weight: 61.69 kg

DRUGS (4)
  1. FOSAMAX [Suspect]
     Active Substance: ALENDRONATE SODIUM
     Indication: Bone disorder
     Dosage: 70 MG, QW
     Route: 048
     Dates: start: 2008, end: 2009
  2. FOSAMAX [Suspect]
     Active Substance: ALENDRONATE SODIUM
     Indication: Osteoporosis
     Dosage: UNK
     Route: 048
     Dates: start: 2004
  3. FOSAMAX [Suspect]
     Active Substance: ALENDRONATE SODIUM
     Indication: Blood cholesterol
  4. ZETIA [Suspect]
     Active Substance: EZETIMIBE
     Indication: Blood cholesterol
     Dosage: 10 MILLIGRAM, ONCE DAILY
     Route: 048
     Dates: start: 2004

REACTIONS (2)
  - Peripheral swelling [Recovered/Resolved]
  - Joint swelling [Recovered/Resolved]

NARRATIVE: CASE EVENT DATE: 20090101
